FAERS Safety Report 6035609-5 (Version None)
Quarter: 2009Q1

REPORT INFORMATION
  Report Type: 
  Country: None (occurrence: None)
  Receive Date: 20090113
  Receipt Date: 20090105
  Transmission Date: 20090719
  Serious: Yes (Other)
  Sender: FDA-Public Use
  Company Number: PHHY2009AU00522

PATIENT
  Sex: Male

DRUGS (10)
  1. CLOZARIL [Suspect]
     Indication: SCHIZOPHRENIA
     Dosage: 12.5 MG, BID
     Route: 048
     Dates: start: 20081101
  2. CLOZARIL [Suspect]
     Dosage: 12.5 MG MANE, 25 MG NOCTE
     Route: 048
     Dates: start: 20081110
  3. CLOZARIL [Suspect]
     Dosage: 12.5 MG, BID
     Route: 048
     Dates: start: 20081117, end: 20081119
  4. OLANZAPINE [Concomitant]
     Dosage: 10 MG, UNK
     Dates: start: 20081008
  5. OLANZAPINE [Concomitant]
     Dosage: 2.5 MG MANE
     Dates: start: 20081110
  6. OSTELIN [Concomitant]
     Dosage: 2 DF DAILY
     Dates: start: 20081027
  7. CALTRATE [Concomitant]
     Dosage: UNK
     Dates: start: 20081027
  8. THIAMINE HCL [Concomitant]
     Dosage: 100 MG DAILY
     Dates: start: 20081027
  9. SPIRIVA [Concomitant]
     Dosage: 18 MG DAILY
     Dates: start: 20081027
  10. IMURAN [Concomitant]
     Dosage: 15 MG NOCTE, PRN
     Dates: start: 20081002

REACTIONS (5)
  - CARDIAC DISORDER [None]
  - DIZZINESS POSTURAL [None]
  - HYPOTENSION [None]
  - THERAPEUTIC RESPONSE DECREASED [None]
  - URINARY TRACT INFECTION [None]
